FAERS Safety Report 9912179 (Version 1)
Quarter: 2014Q1

REPORT INFORMATION
  Report Type: Spontaneous
  Country: FR (occurrence: FR)
  Receive Date: 20140220
  Receipt Date: 20140220
  Transmission Date: 20141002
  Serious: Yes (Hospitalization)
  Sender: FDA-Public Use
  Company Number: FR-ROCHE-1351267

PATIENT
  Age: 19 Year
  Sex: Male

DRUGS (21)
  1. CYMEVAN [Suspect]
     Indication: PRODUCT USED FOR UNKNOWN INDICATION
     Route: 042
     Dates: start: 20130917, end: 20131006
  2. ZOVIRAX [Suspect]
     Indication: PRODUCT USED FOR UNKNOWN INDICATION
     Route: 042
     Dates: start: 20130918, end: 20131006
  3. MYCAMINE [Suspect]
     Indication: PRODUCT USED FOR UNKNOWN INDICATION
     Route: 065
     Dates: start: 20130918, end: 20131006
  4. INNOHEP [Concomitant]
     Route: 065
  5. INEXIUM [Concomitant]
     Route: 065
  6. DESFERAL [Concomitant]
     Route: 065
  7. FORTUM [Concomitant]
     Route: 065
  8. TARGOCID [Concomitant]
     Route: 065
  9. SPIRAMYCINE [Concomitant]
     Route: 065
  10. BACTRIM [Concomitant]
     Route: 065
  11. ORACILLINE [Concomitant]
     Route: 065
  12. FUNGIZONE [Concomitant]
     Route: 065
  13. PYRIDOXINE [Concomitant]
     Route: 065
  14. VITAMIN PP [Concomitant]
     Route: 065
  15. BENERVA [Concomitant]
     Route: 065
  16. PHOCYTAN [Concomitant]
     Route: 065
  17. KREDEX [Concomitant]
     Route: 065
  18. URSOLVAN [Concomitant]
     Dosage: 400MG IN MORNINGS AND 600MG IN EVENINGS
     Route: 065
  19. UVESTEROL [Concomitant]
  20. CICLOSPORINE [Concomitant]
     Route: 065
  21. LAROXYL [Concomitant]
     Dosage: 15MG IN MORNINGS AND 30MG IN EVENINGS
     Route: 065

REACTIONS (1)
  - Hepatic encephalopathy [Recovered/Resolved]
